FAERS Safety Report 17077888 (Version 1)
Quarter: 2019Q4

REPORT INFORMATION
  Report Type: Report from Study
  Country: US (occurrence: US)
  Receive Date: 20191126
  Receipt Date: 20191126
  Transmission Date: 20200122
  Serious: Yes (Other)
  Sender: FDA-Public Use
  Company Number: US-OTSUKA-2019_039248

PATIENT
  Sex: Female

DRUGS (1)
  1. DEXTROMETHORPHAN/QUINIDINE [Suspect]
     Active Substance: DEXTROMETHORPHAN HYDROBROMIDE\QUINIDINE SULFATE
     Indication: AFFECT LABILITY
     Dosage: 1 DF, BID (TWICE DAILY)
     Route: 048
     Dates: start: 20190506

REACTIONS (4)
  - Suicidal ideation [Unknown]
  - Decreased appetite [Unknown]
  - Thrombosis [Unknown]
  - Therapeutic response unexpected [Unknown]
